FAERS Safety Report 14630857 (Version 1)
Quarter: 2018Q1

REPORT INFORMATION
  Report Type: Spontaneous
  Country: ZA (occurrence: ZA)
  Receive Date: 20180313
  Receipt Date: 20180313
  Transmission Date: 20180509
  Serious: Yes (Death)
  Sender: FDA-Public Use
  Company Number: ZA-PFIZER INC-2018102034

PATIENT
  Age: 75 Year
  Sex: Male

DRUGS (7)
  1. COXLEON [Suspect]
     Active Substance: CELECOXIB
     Dosage: 200 MG, UNK
  2. MYLAN METFORMIN [Suspect]
     Active Substance: METFORMIN HYDROCHLORIDE
     Dosage: 850 MG, UNK
  3. ADCO-ATENOLOL [Suspect]
     Active Substance: ATENOLOL
     Dosage: 50 MG, UNK
  4. ADCO-ALZAM [Suspect]
     Active Substance: ALPRAZOLAM
     Dosage: 0.25 MG, UNK
  5. MOVICOL [Suspect]
     Active Substance: POLYETHYLENE GLYCOL 3350\POTASSIUM CHLORIDE\SODIUM BICARBONATE\SODIUM CHLORIDE
  6. TRAMACET [Suspect]
     Active Substance: ACETAMINOPHEN\TRAMADOL
  7. LYRICA [Suspect]
     Active Substance: PREGABALIN
     Dosage: 75 MG, UNK

REACTIONS (1)
  - Death [Fatal]

NARRATIVE: CASE EVENT DATE: 20171206
